FAERS Safety Report 18328534 (Version 1)
Quarter: 2020Q3

REPORT INFORMATION
  Report Type: Spontaneous
  Country: AU (occurrence: AU)
  Receive Date: 20200930
  Receipt Date: 20200930
  Transmission Date: 20201103
  Serious: Yes (Other)
  Sender: FDA-Public Use
  Company Number: AU-ALKEM LABORATORIES LIMITED-AU-ALKEM-2020-06194

PATIENT
  Age: 22 Year
  Sex: Male

DRUGS (1)
  1. FINASTERIDE. [Suspect]
     Active Substance: FINASTERIDE
     Indication: PRODUCT USED FOR UNKNOWN INDICATION
     Dosage: UNK
     Route: 065

REACTIONS (20)
  - Apathy [Unknown]
  - Disturbance in attention [Unknown]
  - Memory impairment [Unknown]
  - Vitreous floaters [Unknown]
  - Anhedonia [Unknown]
  - Depression [Unknown]
  - Semen volume decreased [Unknown]
  - Suicidal ideation [Unknown]
  - Fatigue [Unknown]
  - Insomnia [Unknown]
  - Gingival recession [Unknown]
  - Muscle atrophy [Unknown]
  - Skin atrophy [Unknown]
  - Erectile dysfunction [Unknown]
  - Depressed level of consciousness [Unknown]
  - Anxiety [Unknown]
  - Dissociation [Unknown]
  - Libido decreased [Unknown]
  - Blunted affect [Unknown]
  - Polyuria [Unknown]
